FAERS Safety Report 16129119 (Version 1)
Quarter: 2019Q1

REPORT INFORMATION
  Report Type: Spontaneous
  Country: US (occurrence: US)
  Receive Date: 20190328
  Receipt Date: 20190328
  Transmission Date: 20190418
  Serious: Yes (Other)
  Sender: FDA-Public Use
  Company Number: US-009507513-1903USA010979

PATIENT
  Age: 46 Year
  Sex: Female

DRUGS (1)
  1. NUVARING [Suspect]
     Active Substance: ETHINYL ESTRADIOL\ETONOGESTREL
     Indication: CONTRACEPTION
     Dosage: INSERT 1 RING VAGINALLY FOR 3 WEEKS, REMOVE FOR 1 WEEK AND INSERT NEW RING
     Route: 067
     Dates: start: 20170930, end: 20180220

REACTIONS (8)
  - Pulmonary embolism [Unknown]
  - Hepatic lesion [Unknown]
  - Granuloma [Unknown]
  - Breast mass [Unknown]
  - Computerised tomogram thorax abnormal [Unknown]
  - Deep vein thrombosis [Unknown]
  - Uterine leiomyoma [Unknown]
  - Thyroid mass [Unknown]

NARRATIVE: CASE EVENT DATE: 201802
